FAERS Safety Report 26073441 (Version 1)
Quarter: 2025Q4

REPORT INFORMATION
  Report Type: Spontaneous
  Country: CN (occurrence: CN)
  Receive Date: 20251121
  Receipt Date: 20251121
  Transmission Date: 20260118
  Serious: No
  Sender: ALKEM
  Company Number: CN-ALKEM LABORATORIES LIMITED-CN-ALKEM-2024-25814

PATIENT
  Sex: Female

DRUGS (2)
  1. MINOCYCLINE [Suspect]
     Active Substance: MINOCYCLINE HYDROCHLORIDE
     Indication: Helicobacter infection
     Dosage: 100 MILLIGRAM, BID (CAPSULES)
     Route: 065
  2. VONOPRAZAN [Suspect]
     Active Substance: VONOPRAZAN
     Indication: Helicobacter infection
     Dosage: 20 MILLIGRAM, BID
     Route: 065

REACTIONS (1)
  - Urinary tract infection [Unknown]
